FAERS Safety Report 7990097 (Version 3)
Quarter: 2013Q2

REPORT INFORMATION
  Report Type: Spontaneous
  Country: IE (occurrence: IE)
  Receive Date: 20110614
  Receipt Date: 20130603
  Transmission Date: 20140414
  Serious: Yes (Hospitalization, Other)
  Sender: FDA-Public Use
  Company Number: PHFR2006IE00633

PATIENT
  Age: 55 Year
  Sex: Male

DRUGS (20)
  1. CLOZARIL [Suspect]
     Indication: SCHIZOPHRENIA, PARANOID TYPE
     Dosage: 600 MG DAILY
     Route: 048
  2. CLOZARIL [Suspect]
     Dosage: UNK
     Route: 048
     Dates: start: 20030331, end: 20120912
  3. LOSEC [Concomitant]
     Indication: PEPTIC ULCER
     Dosage: 20 MG, DAILY
     Route: 048
     Dates: start: 2004
  4. SPIRIVA [Concomitant]
     Indication: ASTHMA
     Dosage: 18 UG, DAILY
  5. COMBIVENT [Concomitant]
     Indication: ASTHMA
     Dosage: 2 PUFFS, BID
  6. CALOGEN [Concomitant]
     Dosage: 50 ML, DAILY
     Route: 048
     Dates: start: 20060210
  7. LACTULOSE [Concomitant]
     Indication: CONSTIPATION
     Dosage: UNK UKN, UNK
     Dates: start: 2003
  8. SENNA [Concomitant]
     Dosage: UNK UKN, UNK
  9. FLUOXETINE [Concomitant]
     Indication: DEPRESSION
     Dosage: 20 MG/DAY
     Route: 048
     Dates: start: 2004, end: 20041213
  10. FLUOXETINE [Concomitant]
     Dosage: 20 MG, QD
     Route: 048
  11. EPILIM [Concomitant]
     Indication: MOOD ALTERED
     Dosage: 1.2 G/DAY
     Route: 048
     Dates: start: 20040706
  12. EPILIM [Concomitant]
     Dosage: 1200 UG, QD
     Route: 048
  13. ARIPIPRAZOLE [Concomitant]
     Indication: SCHIZOPHRENIA
     Dosage: 30 MG, QD
     Route: 048
     Dates: start: 20051218
  14. METFORMIN [Concomitant]
     Indication: DIABETES MELLITUS
     Dosage: 100 MG, QD
     Route: 048
  15. TAMSULOSIN [Concomitant]
     Indication: URINARY INCONTINENCE
     Dosage: 400 UG, QD
     Route: 048
  16. FRUSEMIDE [Concomitant]
     Indication: HYPERURICAEMIA
     Dosage: 20 MG, QD
     Route: 048
  17. OMEPRAZOLE [Concomitant]
     Dosage: 20 MG, QD
     Route: 048
  18. RAMIPRIL [Concomitant]
     Indication: HYPERTENSION
     Dosage: 5 MG, QD
     Route: 048
  19. TIOTROPIUM BROMIDE [Concomitant]
     Indication: CHRONIC OBSTRUCTIVE PULMONARY DISEASE
     Dosage: 1 DF, QD
  20. SERETIDE [Concomitant]
     Indication: CHRONIC OBSTRUCTIVE PULMONARY DISEASE
     Dosage: 2 DF, BID
     Route: 048

REACTIONS (14)
  - Fractured sacrum [Recovered/Resolved with Sequelae]
  - Pubis fracture [Recovered/Resolved with Sequelae]
  - Neurogenic bladder [Recovered/Resolved with Sequelae]
  - Neurological symptom [Recovered/Resolved with Sequelae]
  - Neurogenic bowel [Recovered/Resolved with Sequelae]
  - Back pain [Recovered/Resolved with Sequelae]
  - Hypoaesthesia [Recovered/Resolved with Sequelae]
  - Tenderness [Recovered/Resolved with Sequelae]
  - Staphylococcal infection [Unknown]
  - Retroperitoneal haematoma [Not Recovered/Not Resolved]
  - Lumbosacral plexus lesion [Not Recovered/Not Resolved]
  - Pulmonary embolism [Not Recovered/Not Resolved]
  - Cellulitis [Recovered/Resolved]
  - Hypertension [Not Recovered/Not Resolved]
